FAERS Safety Report 17180527 (Version 1)
Quarter: 2019Q4

REPORT INFORMATION
  Report Type: Report from Study
  Country: US (occurrence: US)
  Receive Date: 20191220
  Receipt Date: 20191220
  Transmission Date: 20200122
  Serious: Yes (Other)
  Sender: FDA-Public Use
  Company Number: US-ROCHE-2417561

PATIENT
  Age: 76 Year
  Sex: Female
  Weight: 50.85 kg

DRUGS (2)
  1. RITUXAN [Suspect]
     Active Substance: RITUXIMAB
     Indication: RHEUMATOID ARTHRITIS
     Dosage: DATE OF TREATMENT 06/JUN/2019
     Route: 042
     Dates: start: 2019
  2. PREDNISONE. [Concomitant]
     Active Substance: PREDNISONE
     Route: 065
     Dates: end: 201906

REACTIONS (5)
  - Depression [Unknown]
  - Haemorrhage [Recovered/Resolved]
  - Decubitus ulcer [Unknown]
  - Erythema [Unknown]
  - Contusion [Recovered/Resolved]

NARRATIVE: CASE EVENT DATE: 201909
